FAERS Safety Report 5381852-8 (Version None)
Quarter: 2007Q3

REPORT INFORMATION
  Report Type: 
  Country: None (occurrence: None)
  Receive Date: 20070705
  Receipt Date: 20070705
  Transmission Date: 20080115
  Serious: Yes (Disabling)
  Sender: FDA-Public Use
  Company Number: None

PATIENT
  Age: 57 Year
  Sex: Male

DRUGS (1)
  1. CISPLATIN [Suspect]
     Dosage: 210MG OTHER IV
     Route: 042
     Dates: start: 20060718, end: 20060807

REACTIONS (3)
  - MUSCULAR WEAKNESS [None]
  - NEUROPATHY PERIPHERAL [None]
  - SENSORY LOSS [None]
